FAERS Safety Report 7402423-5 (Version None)
Quarter: 2011Q2

REPORT INFORMATION
  Report Type: 
  Country: None (occurrence: None)
  Receive Date: 20110408
  Receipt Date: 20110325
  Transmission Date: 20111010
  Serious: Yes (Life-Threatening, Hospitalization, Other)
  Sender: FDA-Public Use
  Company Number: US-CELGENEUS-163-20785-10121812

PATIENT
  Sex: Male

DRUGS (18)
  1. DEXAMETHASONE [Concomitant]
     Dosage: 4 MILLIGRAM
     Route: 065
  2. THALOMID [Suspect]
     Dosage: 100 MILLIGRAM
     Route: 048
     Dates: start: 20061101, end: 20101201
  3. COLACE [Concomitant]
     Dosage: 100 MILLIGRAM
     Route: 065
  4. POTASSIUM CHLORIDE [Concomitant]
     Route: 065
  5. ZOMETA [Concomitant]
     Dosage: 4 MILLILITER
     Route: 065
  6. ZESTRIL [Concomitant]
     Indication: RENAL FAILURE
     Dosage: 5 MILLIGRAM
     Route: 065
  7. COUMADIN [Concomitant]
     Dosage: 4 MILLIGRAM
     Route: 065
  8. ASPIRIN [Concomitant]
     Dosage: 81 MILLIGRAM
     Route: 065
  9. TOPROL-XL [Concomitant]
     Dosage: 25 MILLIGRAM
     Route: 065
  10. LASIX [Concomitant]
     Dosage: 40 MILLIGRAM
     Route: 065
  11. LIPITOR [Concomitant]
     Dosage: 40 MILLIGRAM
     Route: 065
  12. ZAROXOLYN [Concomitant]
     Indication: RENAL FAILURE
     Route: 065
  13. THALOMID [Suspect]
     Dosage: 100 MILLIGRAM
     Route: 048
     Dates: start: 20060301
  14. NIACIN [Concomitant]
     Dosage: 1000 MILLIGRAM
     Route: 065
  15. SENNA [Concomitant]
     Dosage: 8.6 MILLIGRAM
     Route: 065
  16. CALCIUM [Concomitant]
     Dosage: 500 MILLIGRAM
     Route: 065
  17. FLUTAMIDE [Concomitant]
     Dosage: 100 MILLIGRAM
     Route: 065
  18. ZETIA [Concomitant]
     Dosage: 10 MILLIGRAM
     Route: 065

REACTIONS (7)
  - CORONARY ARTERY DISEASE [None]
  - CARDIAC FAILURE CONGESTIVE [None]
  - DRUG INEFFECTIVE [None]
  - MULTIPLE MYELOMA [None]
  - CELLULITIS [None]
  - UROSEPSIS [None]
  - RENAL FAILURE ACUTE [None]
